FAERS Safety Report 19848256 (Version 2)
Quarter: 2021Q3

REPORT INFORMATION
  Report Type: Report from Study
  Country: EG (occurrence: EG)
  Receive Date: 20210918
  Receipt Date: 20210921
  Transmission Date: 20211014
  Serious: Yes (Other)
  Sender: FDA-Public Use
  Company Number: EG-REGENERON PHARMACEUTICALS, INC.-2021-84496

PATIENT

DRUGS (5)
  1. EYLEA [Suspect]
     Active Substance: AFLIBERCEPT
     Dosage: LEFT EYE; TOTAL OF 11 DOSES
     Route: 031
     Dates: start: 202102
  2. EYLEA [Suspect]
     Active Substance: AFLIBERCEPT
     Indication: AGE-RELATED MACULAR DEGENERATION
     Dosage: LEFT EYE, 2 OR 3 TIMES IN A YEAR
     Route: 031
     Dates: start: 2017
  3. TAMSULIN [Concomitant]
     Indication: PROSTATIC DISORDER
     Dosage: 1 DF, QD
  4. PROSTACURE [Concomitant]
     Indication: PROSTATIC DISORDER
     Dosage: UNK
  5. NATRILIX                           /00340101/ [Concomitant]
     Active Substance: INDAPAMIDE
     Indication: HYPERTENSION
     Dosage: 1 DF, QD

REACTIONS (1)
  - Retinal oedema [Recovered/Resolved]
